FAERS Safety Report 7523339-X (Version None)
Quarter: 2011Q2

REPORT INFORMATION
  Report Type: 
  Country: None (occurrence: None)
  Receive Date: 20110603
  Receipt Date: 20110525
  Transmission Date: 20111010
  Serious: Yes (Hospitalization)
  Sender: FDA-Public Use
  Company Number: A0926496A

PATIENT
  Age: 67 Year
  Sex: Female

DRUGS (2)
  1. TYKERB [Suspect]
     Dosage: 5TAB PER DAY
     Route: 048
  2. XELODA [Concomitant]

REACTIONS (7)
  - NEOPLASM PROGRESSION [None]
  - HAEMORRHAGE [None]
  - METASTASIS [None]
  - PALMAR-PLANTAR ERYTHRODYSAESTHESIA SYNDROME [None]
  - PAIN [None]
  - SKIN CHAPPED [None]
  - DUODENAL ULCER [None]
